FAERS Safety Report 15309057 (Version 1)
Quarter: 2018Q4

REPORT INFORMATION
  Report Type: Spontaneous
  Country: FR (occurrence: FR)
  Receive Date: 20180823
  Receipt Date: 20180823
  Transmission Date: 20190204
  Serious: Yes (Life-Threatening)
  Sender: FDA-Public Use
  Company Number: FR-TEVA-2018-FR-945757

PATIENT
  Age: 71 Year
  Sex: Female

DRUGS (10)
  1. STALEVO [Concomitant]
     Active Substance: CARBIDOPA\ENTACAPONE\LEVODOPA
     Route: 065
  2. METFORMINE [Suspect]
     Active Substance: METFORMIN HYDROCHLORIDE
     Indication: TYPE 2 DIABETES MELLITUS
     Dosage: 2550 MILLIGRAM DAILY;
     Route: 048
     Dates: end: 20180106
  3. PREVISCAN 20 MG, SCORED TABLET [Concomitant]
     Active Substance: FLUINDIONE
     Dosage: SCORED TABLET
  4. XALATAN [Concomitant]
     Active Substance: LATANOPROST
     Route: 065
  5. RAMIPRIL. [Suspect]
     Active Substance: RAMIPRIL
     Indication: HYPERTENSION
     Dosage: 10 MILLIGRAM DAILY;
     Route: 048
     Dates: end: 20180106
  6. LASILIX [Concomitant]
     Active Substance: FUROSEMIDE
     Route: 065
  7. EZETROL [Concomitant]
     Active Substance: EZETIMIBE
     Route: 065
  8. SINEMET [Concomitant]
     Active Substance: CARBIDOPA\LEVODOPA
     Route: 065
  9. DAONIL 5 MG, SCORED TABLET [Suspect]
     Active Substance: GLYBURIDE
     Indication: TYPE 2 DIABETES MELLITUS
     Dosage: 1.5 DOSAGE FORMS DAILY; SCORED TABLET
     Route: 048
     Dates: end: 20180106
  10. BISOCE [Concomitant]
     Active Substance: BISOPROLOL
     Route: 065

REACTIONS (4)
  - Vomiting [Recovered/Resolved]
  - Hypoglycaemia [Recovered/Resolved]
  - Lactic acidosis [Recovered/Resolved]
  - Diarrhoea [Recovered/Resolved]

NARRATIVE: CASE EVENT DATE: 20180106
